FAERS Safety Report 4461846-7 (Version None)
Quarter: 2004Q3

REPORT INFORMATION
  Report Type: 
  Country: None (occurrence: None)
  Receive Date: 20040929
  Receipt Date: 20031031
  Transmission Date: 20050211
  Serious: No
  Sender: FDA-Public Use
  Company Number: US-GLAXOSMITHKLINE-A0432435A

PATIENT
  Age: 51 Year
  Sex: Female
  Weight: 40.9 kg

DRUGS (8)
  1. SEREVENT [Suspect]
     Indication: ASTHMA
     Dosage: 1PUFF TWICE PER DAY
     Route: 055
     Dates: start: 20030909
  2. ATROVENT [Concomitant]
  3. ALBUTEROL [Concomitant]
  4. FLOVENT [Concomitant]
     Route: 055
  5. ACIPHEX [Concomitant]
  6. ZELNORM [Concomitant]
  7. FOLIC ACID [Concomitant]
  8. Z-BEC [Concomitant]

REACTIONS (3)
  - CHEST DISCOMFORT [None]
  - DRUG INEFFECTIVE [None]
  - DYSPNOEA [None]
